FAERS Safety Report 8026018-8 (Version None)
Quarter: 2012Q1

REPORT INFORMATION
  Report Type: 
  Country: None (occurrence: None)
  Receive Date: 20120105
  Receipt Date: 20111007
  Transmission Date: 20120608
  Serious: No
  Sender: FDA-Public Use
  Company Number: US-ABBOTT-11P-163-0863296-00

PATIENT
  Sex: Female
  Weight: 70.37 kg

DRUGS (2)
  1. SYNTHROID [Suspect]
     Indication: AUTOIMMUNE THYROIDITIS
  2. SYNTHROID [Suspect]
     Indication: AUTOIMMUNE THYROIDITIS
     Dates: start: 19960101

REACTIONS (6)
  - ADVERSE DRUG REACTION [None]
  - DIARRHOEA [None]
  - FEELING JITTERY [None]
  - NERVOUSNESS [None]
  - ARTHRALGIA [None]
  - PHARYNGEAL OEDEMA [None]
